FAERS Safety Report 24050908 (Version 4)
Quarter: 2024Q4

REPORT INFORMATION
  Report Type: Spontaneous
  Country: US (occurrence: US)
  Receive Date: 20240704
  Receipt Date: 20241113
  Transmission Date: 20250115
  Serious: Yes (Hospitalization)
  Sender: SAREPTA THERAPEUTICS
  Company Number: US-SAREPTA THERAPEUTICS INC.-SRP2024-004792

PATIENT
  Age: 6 Year
  Sex: Male
  Weight: 18.7 kg

DRUGS (11)
  1. ELEVIDYS [Suspect]
     Active Substance: DELANDISTROGENE MOXEPARVOVEC-ROKL
     Indication: Duchenne muscular dystrophy
     Dosage: UNK, SINGLE
     Dates: start: 20240415, end: 20240415
  2. DEFLAZACORT [Concomitant]
     Active Substance: DEFLAZACORT
     Indication: Duchenne muscular dystrophy
     Dosage: 10 MILLIGRAM, QD (0.4396 ML)
     Route: 048
     Dates: start: 20240112
  3. ENALAPRIL [Concomitant]
     Active Substance: ENALAPRIL
     Indication: Cardiomyopathy
     Dosage: 4 MILLIGRAM, BID
     Route: 048
     Dates: start: 20240228, end: 20240722
  4. EPLERENONE [Concomitant]
     Active Substance: EPLERENONE
     Indication: Cardiomyopathy
     Dosage: 25 MILLIGRAM, QD
     Dates: start: 20240402
  5. FAMOTIDINE [Concomitant]
     Active Substance: FAMOTIDINE
     Indication: Prophylaxis
     Dosage: 10 MILLIGRAM, BID (1.25 ML)
     Dates: start: 20240426
  6. PREDNISOLONE [Concomitant]
     Active Substance: PREDNISOLONE
     Indication: Immunosuppression
     Dosage: 39 MILLIGRAM, QD ( 3ML)
     Route: 048
     Dates: start: 20240621, end: 20240710
  7. PREDNISOLONE [Concomitant]
     Active Substance: PREDNISOLONE
     Dosage: 18.7 MILLIGRAM ( 1MG/KG/DOSE)
     Route: 048
     Dates: start: 20240719
  8. ALBUTEROL SULFATE [Concomitant]
     Active Substance: ALBUTEROL SULFATE
     Indication: Product used for unknown indication
     Dosage: 2-4 PUFF, Q4H AS NEEDED
     Dates: start: 20231128
  9. STRATTERA [Concomitant]
     Active Substance: ATOMOXETINE HYDROCHLORIDE
     Indication: Product used for unknown indication
     Dosage: 10 MILLIGRAM (1 CAPSULE BY MOUTH DAILY FOR 3 DAYS THEN INCREASE TO 2 CAPSULES DAILY)
     Route: 048
     Dates: start: 20240528
  10. DULERA [Concomitant]
     Active Substance: FORMOTEROL FUMARATE DIHYDRATE\MOMETASONE FUROATE
     Indication: Product used for unknown indication
     Dosage: 2 PUFF TWICE A DAY, AS NEEDED
     Dates: start: 20240410
  11. MINERALS\VITAMINS [Concomitant]
     Active Substance: MINERALS\VITAMINS
     Indication: Product used for unknown indication
     Dosage: UNK, QD (2 SCOOPS DAILY)
     Route: 048
     Dates: start: 20231011

REACTIONS (10)
  - Hepatotoxicity [Recovering/Resolving]
  - Pain in extremity [Unknown]
  - Pruritus [Unknown]
  - Vomiting [Recovered/Resolved]
  - Heart rate increased [Unknown]
  - Dehydration [Recovered/Resolved]
  - Adrenocortical insufficiency acute [Recovered/Resolved]
  - Fatigue [Unknown]
  - Croup infectious [Unknown]
  - Nasal congestion [Unknown]

NARRATIVE: CASE EVENT DATE: 20240531
